FAERS Safety Report 4526151-9 (Version None)
Quarter: 2004Q4

REPORT INFORMATION
  Report Type: 
  Country: None (occurrence: None)
  Receive Date: 20041210
  Receipt Date: 20041203
  Transmission Date: 20050328
  Serious: Yes (Death, Life-Threatening, Hospitalization)
  Sender: FDA-Public Use
  Company Number: PERC20040068

PATIENT
  Age: 47 Year
  Sex: Male

DRUGS (1)
  1. PERCOCET [Suspect]
     Dosage: 80 TABS  ONCE  PO
     Route: 048
     Dates: start: 20030101, end: 20030101

REACTIONS (4)
  - ANOXIC ENCEPHALOPATHY [None]
  - COMPLETED SUICIDE [None]
  - INTENTIONAL OVERDOSE [None]
  - PUPIL FIXED [None]
